FAERS Safety Report 6177553-9 (Version None)
Quarter: 2009Q2

REPORT INFORMATION
  Report Type: 
  Country: None (occurrence: None)
  Receive Date: 20090504
  Receipt Date: 20090427
  Transmission Date: 20091009
  Serious: Yes (Hospitalization, Other)
  Sender: FDA-Public Use
  Company Number: US-ELI_LILLY_AND_COMPANY-US200904006139

PATIENT
  Sex: Female

DRUGS (11)
  1. HUMALOG [Suspect]
     Dosage: 15 U, 3/D
     Dates: start: 20091001
  2. HUMALOG [Suspect]
     Dosage: 15 U, 3/D
     Dates: start: 20091001
  3. DDAVP [Concomitant]
  4. CORTEF [Concomitant]
  5. MIRAPEX [Concomitant]
     Indication: RESTLESS LEGS SYNDROME
  6. LORAZEPAM [Concomitant]
  7. LEXAPRO [Concomitant]
  8. CRESTOR [Concomitant]
  9. VITAMINS [Concomitant]
  10. FISH OIL [Concomitant]
  11. FENTANYL [Concomitant]
     Indication: PAIN
     Route: 062

REACTIONS (10)
  - BLOOD GLUCOSE DECREASED [None]
  - BLOOD GLUCOSE INCREASED [None]
  - CYSTITIS [None]
  - DEAFNESS [None]
  - DEVICE MALFUNCTION [None]
  - FALL [None]
  - INFECTION [None]
  - PAIN [None]
  - PRODUCT QUALITY ISSUE [None]
  - UPPER LIMB FRACTURE [None]
